FAERS Safety Report 7418697-0 (Version None)
Quarter: 2011Q2

REPORT INFORMATION
  Report Type: 
  Country: None (occurrence: None)
  Receive Date: 20110415
  Receipt Date: 20110405
  Transmission Date: 20111010
  Serious: Yes (Hospitalization)
  Sender: FDA-Public Use
  Company Number: GB-JNJFOC-20110402016

PATIENT
  Age: 38 Year
  Sex: Male

DRUGS (4)
  1. NICOTINE [Suspect]
     Route: 062
  2. ACETAMINOPHEN AND CODEINE PHOSPHATE [Concomitant]
     Indication: ABDOMINAL PAIN
     Route: 048
  3. NICOTINE [Suspect]
     Indication: PRODUCT USED FOR UNKNOWN INDICATION
     Route: 062
  4. TRAMADOL [Concomitant]
     Indication: ABDOMINAL PAIN
     Route: 048

REACTIONS (2)
  - COLITIS ULCERATIVE [None]
  - WITHDRAWAL SYNDROME [None]
